FAERS Safety Report 14101988 (Version 1)
Quarter: 2017Q4

REPORT INFORMATION
  Report Type: Spontaneous
  Country: IT (occurrence: IT)
  Receive Date: 20171018
  Receipt Date: 20171018
  Transmission Date: 20180321
  Serious: Yes (Other)
  Sender: FDA-Public Use
  Company Number: PHHY2017IT152257

PATIENT
  Age: 58 Year
  Sex: Male

DRUGS (2)
  1. TRAMADOL. [Suspect]
     Active Substance: TRAMADOL
     Indication: BACK PAIN
     Dosage: 3 DF, QD
     Route: 048
  2. DEXKETOPROFEN TROMETAMOL [Suspect]
     Active Substance: DEXKETOPROFEN TROMETAMOL
     Indication: BACK PAIN
     Dosage: 3 DF, QD
     Route: 048
     Dates: start: 20170723, end: 20170724

REACTIONS (1)
  - Anuria [Recovering/Resolving]

NARRATIVE: CASE EVENT DATE: 20170724
